FAERS Safety Report 4531291-4 (Version None)
Quarter: 2004Q4

REPORT INFORMATION
  Report Type: 
  Country: None (occurrence: None)
  Receive Date: 20041206
  Receipt Date: 20041005
  Transmission Date: 20050328
  Serious: No
  Sender: FDA-Public Use
  Company Number: USA041080317

PATIENT
  Age: 50 Year
  Sex: Female

DRUGS (3)
  1. CYMBALTA [Suspect]
     Indication: DEPRESSION
     Dosage: 30 MG/1 DAY
     Dates: start: 20041003, end: 20041006
  2. SYNTHROID [Concomitant]
  3. KLONOPIN [Concomitant]

REACTIONS (6)
  - ANOREXIA [None]
  - FATIGUE [None]
  - HEADACHE [None]
  - NAUSEA [None]
  - RASH PRURITIC [None]
  - SOMNOLENCE [None]
